FAERS Safety Report 10094026 (Version 1)
Quarter: 2014Q2

REPORT INFORMATION
  Report Type: Report from Study
  Country: FR (occurrence: FR)
  Receive Date: 20140422
  Receipt Date: 20140422
  Transmission Date: 20141212
  Serious: Yes (Hospitalization)
  Sender: FDA-Public Use
  Company Number: FR-ROCHE-1386735

PATIENT
  Sex: Female

DRUGS (5)
  1. RITUXIMAB [Suspect]
     Indication: RHEUMATOID ARTHRITIS
     Route: 041
     Dates: start: 20080204
  2. LEFLUNOMIDE [Concomitant]
     Route: 065
  3. CORTANCYL [Concomitant]
     Route: 065
  4. CORTANCYL [Concomitant]
     Route: 065
  5. CORTANCYL [Concomitant]
     Route: 065

REACTIONS (2)
  - Arthropathy [Recovered/Resolved]
  - Weight decreased [Not Recovered/Not Resolved]
